FAERS Safety Report 5592609-7 (Version None)
Quarter: 2008Q1

REPORT INFORMATION
  Report Type: 
  Country: None (occurrence: None)
  Receive Date: 20080114
  Receipt Date: 20071231
  Transmission Date: 20080703
  Serious: Yes (Hospitalization)
  Sender: FDA-Public Use
  Company Number: GP123107

PATIENT
  Age: 63 Year
  Sex: Male
  Weight: 68.0396 kg

DRUGS (1)
  1. GRIS-PEG [Suspect]
     Indication: ONYCHOMYCOSIS
     Dosage: 250MG, QD; PO
     Route: 048
     Dates: start: 20071117, end: 20071215

REACTIONS (14)
  - ANOREXIA [None]
  - COUGH [None]
  - FATIGUE [None]
  - FEELING ABNORMAL [None]
  - GASTROOESOPHAGEAL REFLUX DISEASE [None]
  - HEADACHE [None]
  - HEPATIC ENZYME INCREASED [None]
  - HYPERHIDROSIS [None]
  - HYPOTHERMIA [None]
  - MYALGIA [None]
  - TREMOR [None]
  - URINE BILIRUBIN INCREASED [None]
  - URINE COLOUR ABNORMAL [None]
  - WHITE BLOOD CELL COUNT INCREASED [None]
